FAERS Safety Report 7385746-8 (Version None)
Quarter: 2011Q1

REPORT INFORMATION
  Report Type: 
  Country: None (occurrence: None)
  Receive Date: 20110331
  Receipt Date: 20100909
  Transmission Date: 20110831
  Serious: Yes (Life-Threatening, Hospitalization, Other)
  Sender: FDA-Public Use
  Company Number: US-BAYER-201021624NA

PATIENT
  Sex: Female
  Weight: 87.528 kg

DRUGS (8)
  1. BENTYL [Concomitant]
     Dosage: UNK
     Dates: start: 20090301, end: 20091101
  2. YAZ [Suspect]
     Indication: PREMENSTRUAL SYNDROME
     Dosage: UNK
     Dates: start: 20090601, end: 20091101
  3. MAXALT [Concomitant]
     Dosage: UNK
     Dates: start: 20090401, end: 20090501
  4. UNCODEABLE ^UNCLASSIFIABLE^ [Concomitant]
  5. LORATADINE [Concomitant]
  6. FENERGAN [PROMETHAZINE] [Concomitant]
     Dosage: UNK
     Dates: start: 20090301
  7. NASONEX [Concomitant]
  8. YAZ [Suspect]
     Indication: MENSTRUAL CYCLE MANAGEMENT
     Dosage: UNK UNK, QD
     Route: 048
     Dates: start: 20090601, end: 20091101

REACTIONS (3)
  - PAIN [None]
  - CHOLECYSTITIS [None]
  - GALLBLADDER DISORDER [None]
